FAERS Safety Report 5943281-5 (Version None)
Quarter: 2008Q4

REPORT INFORMATION
  Report Type: 
  Country: None (occurrence: None)
  Receive Date: 20081105
  Receipt Date: 20081105
  Transmission Date: 20090506
  Serious: Yes (Other)
  Sender: FDA-Public Use
  Company Number: None

PATIENT
  Sex: Female
  Weight: 50.8029 kg

DRUGS (1)
  1. LAMICTAL [Suspect]
     Indication: PARTIAL SEIZURES
     Dosage: 3 AM - 3 PM DAILY PO
     Route: 048
     Dates: start: 20081002, end: 20081104

REACTIONS (7)
  - BRAIN OEDEMA [None]
  - CHILLS [None]
  - HYPERHIDROSIS [None]
  - LOCAL SWELLING [None]
  - MUSCULOSKELETAL STIFFNESS [None]
  - NECK PAIN [None]
  - PYREXIA [None]
